FAERS Safety Report 12797003 (Version 1)
Quarter: 2016Q3

REPORT INFORMATION
  Report Type: Spontaneous
  Country: ES (occurrence: ES)
  Receive Date: 20160929
  Receipt Date: 20160929
  Transmission Date: 20161109
  Serious: Yes (Hospitalization)
  Sender: FDA-Public Use
  Company Number: ES-ALLERGAN-1670177US

PATIENT
  Age: 36 Year
  Sex: Female

DRUGS (2)
  1. ESMYA [Suspect]
     Active Substance: ULIPRISTAL ACETATE
     Indication: MENORRHAGIA
     Dosage: UNK
     Dates: start: 20140505, end: 20140829
  2. ESMYA [Suspect]
     Active Substance: ULIPRISTAL ACETATE
     Indication: UTERINE LEIOMYOMA

REACTIONS (4)
  - Dyschezia [Unknown]
  - Endometriosis [Recovered/Resolved with Sequelae]
  - Intentional product use issue [Unknown]
  - Amenorrhoea [Unknown]
